FAERS Safety Report 7798896-9 (Version None)
Quarter: 2011Q4

REPORT INFORMATION
  Report Type: 
  Country: None (occurrence: None)
  Receive Date: 20111005
  Receipt Date: 20111005
  Transmission Date: 20120403
  Serious: Yes (Hospitalization)
  Sender: FDA-Public Use
  Company Number: None

PATIENT
  Age: 57 Year
  Sex: Male
  Weight: 88 kg

DRUGS (2)
  1. QUETIAPINE [Suspect]
     Indication: AFFECTIVE DISORDER
     Dosage: 200 MG HS PO
     Route: 048
     Dates: start: 20060303, end: 20110930
  2. PROPRANOLOL [Suspect]
     Indication: AFFECTIVE DISORDER
     Dosage: 80 MG HS PO
     Route: 048
     Dates: start: 19980320, end: 20110930

REACTIONS (2)
  - BRADYCARDIA [None]
  - SYNCOPE [None]
